FAERS Safety Report 7987188-0 (Version None)
Quarter: 2011Q4

REPORT INFORMATION
  Report Type: 
  Country: None (occurrence: None)
  Receive Date: 20111216
  Receipt Date: 20111006
  Transmission Date: 20120403
  Serious: No
  Sender: FDA-Public Use
  Company Number: US-BRISTOL-MYERS SQUIBB COMPANY-16140113

PATIENT
  Age: 16 Year
  Sex: Male
  Weight: 73 kg

DRUGS (1)
  1. ABILIFY [Suspect]
     Indication: SCHIZOAFFECTIVE DISORDER
     Dosage: 1DF: 5 MG EVERY MORNING AND 10 MG EVERY NIGHT. UNK DATE DOSE IMCREASED TO 20MG.
     Dates: start: 20110801

REACTIONS (1)
  - MUSCLE TWITCHING [None]
